FAERS Safety Report 4761689-0 (Version None)
Quarter: 2005Q3

REPORT INFORMATION
  Report Type: 
  Country: None (occurrence: None)
  Receive Date: 20050906
  Receipt Date: 20050825
  Transmission Date: 20060218
  Serious: Yes (Hospitalization)
  Sender: FDA-Public Use
  Company Number: FR-JNJFOC-20050505294

PATIENT
  Age: 75 Year
  Sex: Male

DRUGS (4)
  1. RISPERDAL [Suspect]
     Route: 048
     Dates: start: 20021101
  2. RISPERDAL [Suspect]
     Route: 048
     Dates: start: 20021101
  3. RISPERDAL [Suspect]
     Route: 048
     Dates: start: 20021101
  4. RISPERDAL [Suspect]
     Route: 048
     Dates: start: 20021101

REACTIONS (2)
  - EXTRAPYRAMIDAL DISORDER [None]
  - VASCULAR DEMENTIA [None]
